FAERS Safety Report 9117037 (Version 1)
Quarter: 2013Q1

REPORT INFORMATION
  Report Type: Report from Study
  Country: CA (occurrence: CA)
  Receive Date: 20130225
  Receipt Date: 20130225
  Transmission Date: 20140127
  Serious: Yes (Other)
  Sender: FDA-Public Use
  Company Number: CA-JNJFOC-20130208016

PATIENT
  Age: 17 None
  Sex: Female
  Weight: 49 kg

DRUGS (4)
  1. INFLIXIMAB [Suspect]
     Indication: CROHN^S DISEASE
     Dosage: 2,4,8 WEEKS (INDUCTION PHASE)
     Route: 042
     Dates: start: 20130103
  2. IMURAN [Concomitant]
     Route: 065
  3. CALCIUM [Concomitant]
     Route: 065
  4. POTASSIUM [Concomitant]
     Route: 065

REACTIONS (5)
  - Dehydration [Unknown]
  - Haemoglobin decreased [Unknown]
  - Drug ineffective [Unknown]
  - Oedema peripheral [Unknown]
  - Electrolyte imbalance [Unknown]
